FAERS Safety Report 7688157-0 (Version None)
Quarter: 2011Q3

REPORT INFORMATION
  Report Type: 
  Country: None (occurrence: None)
  Receive Date: 20110817
  Receipt Date: 20110811
  Transmission Date: 20111222
  Serious: Yes (Other)
  Sender: FDA-Public Use
  Company Number: GB-BAXTER-2011BH025522

PATIENT
  Age: 7 Week
  Sex: Male
  Weight: 4 kg

DRUGS (1)
  1. LIDOCAINE HYDROCHLORIDE [Suspect]
     Indication: LOCAL ANAESTHESIA
     Route: 065

REACTIONS (4)
  - CONVULSION [None]
  - UNRESPONSIVE TO STIMULI [None]
  - HYPERTONIA [None]
  - MEDICATION ERROR [None]
